FAERS Safety Report 20444073 (Version 1)
Quarter: 2022Q1

REPORT INFORMATION
  Report Type: Spontaneous
  Country: US (occurrence: None)
  Receive Date: 20220208
  Receipt Date: 20220208
  Transmission Date: 20220423
  Serious: Yes (Hospitalization)
  Sender: FDA-Public Use
  Company Number: None

PATIENT
  Sex: Female

DRUGS (3)
  1. HUMIRA [Suspect]
     Active Substance: ADALIMUMAB
     Indication: Rheumatoid arthritis
     Dosage: 40MG/0.4ML;? ?INJECT ONE PEN UNDER THE SKIN (SUBCUTANEOUS INJECTION) EVERY OTHER WEEK
     Route: 058
     Dates: start: 20211207
  2. ENBREL [Concomitant]
     Active Substance: ETANERCEPT
  3. OFEV [Concomitant]
     Active Substance: NINTEDANIB

REACTIONS (9)
  - Urinary tract infection [None]
  - Drug ineffective [None]
  - Sepsis [None]
  - Injection site erythema [None]
  - Injection site pruritus [None]
  - Condition aggravated [None]
  - Joint swelling [None]
  - Erythema [None]
  - Joint warmth [None]
